FAERS Safety Report 9091297 (Version 1)
Quarter: 2013Q1

REPORT INFORMATION
  Report Type: Spontaneous
  Country: US (occurrence: US)
  Receive Date: 20130131
  Receipt Date: 20130131
  Transmission Date: 20140127
  Serious: No
  Sender: FDA-Public Use
  Company Number: US-009507513-1301USA013050

PATIENT
  Age: 29 Year
  Sex: Female

DRUGS (2)
  1. TEMODAR [Suspect]
     Indication: ANAPLASTIC ASTROCYTOMA
     Dosage: ONCE A DAY, 5 DAYS OUT OF 28 DAYS
     Route: 048
     Dates: start: 2012, end: 201301
  2. ONDANSETRON HYDROCHLORIDE [Concomitant]

REACTIONS (2)
  - Urticaria [Recovered/Resolved]
  - Urticaria [Recovered/Resolved]
